FAERS Safety Report 13839520 (Version 1)
Quarter: 2017Q3

REPORT INFORMATION
  Report Type: Spontaneous
  Country: US (occurrence: US)
  Receive Date: 20170805
  Receipt Date: 20170805
  Transmission Date: 20171127
  Serious: No
  Sender: FDA-Public Use
  Company Number: None

PATIENT
  Age: 19 Year
  Sex: Female

DRUGS (10)
  1. PROPOFOL. [Suspect]
     Active Substance: PROPOFOL
     Dosage: 10 TO 50 MCG/KG/MIN CONTINUOUS IV
     Route: 042
  2. ALBUTEROL. [Concomitant]
     Active Substance: ALBUTEROL
  3. FAMOTIDINE. [Concomitant]
     Active Substance: FAMOTIDINE
  4. FENTANYL. [Concomitant]
     Active Substance: FENTANYL
  5. OCTREOTIDE. [Concomitant]
     Active Substance: OCTREOTIDE
  6. CHLORHEXADINE [Concomitant]
     Active Substance: CHLORHEXIDINE
  7. HEPARIN [Concomitant]
     Active Substance: HEPARIN SODIUM
  8. ACETAMINOPHEN. [Concomitant]
     Active Substance: ACETAMINOPHEN
  9. DEXMEDETOMIDINE. [Suspect]
     Active Substance: DEXMEDETOMIDINE
     Indication: SEDATION
     Route: 042
     Dates: start: 20161230, end: 20161230
  10. PANTOPRAZOLE [Concomitant]
     Active Substance: PANTOPRAZOLE

REACTIONS (3)
  - Sinus bradycardia [None]
  - Sinus arrhythmia [None]
  - Electrocardiogram QT prolonged [None]

NARRATIVE: CASE EVENT DATE: 20161230
